FAERS Safety Report 23056615 (Version 1)
Quarter: 2023Q4

REPORT INFORMATION
  Report Type: Spontaneous
  Country: US (occurrence: US)
  Receive Date: 20231011
  Receipt Date: 20231011
  Transmission Date: 20240110
  Serious: No
  Sender: FDA-Public Use
  Company Number: US-Blueprint Medicines Corporation-1549

PATIENT
  Age: 47 Year
  Sex: Female

DRUGS (1)
  1. AYVAKIT [Suspect]
     Active Substance: AVAPRITINIB
     Indication: Gastric cancer
     Route: 065
     Dates: start: 20230914, end: 20230916

REACTIONS (2)
  - Swelling face [Unknown]
  - Off label use [Unknown]

NARRATIVE: CASE EVENT DATE: 20230914
